FAERS Safety Report 6210831-3 (Version None)
Quarter: 2009Q2

REPORT INFORMATION
  Report Type: 
  Country: None (occurrence: None)
  Receive Date: 20090601
  Receipt Date: 20090521
  Transmission Date: 20091009
  Serious: Yes (Hospitalization, Other)
  Sender: FDA-Public Use
  Company Number: PHHY2008GB14246

PATIENT
  Sex: Female

DRUGS (3)
  1. CLOZARIL [Suspect]
     Indication: SCHIZOPHRENIA
     Dosage: 500 MG
     Route: 048
     Dates: start: 20050321, end: 20080721
  2. CLOZARIL [Suspect]
     Dosage: UNK
     Dates: start: 20090126, end: 20090402
  3. LITHIUM CARBONATE [Concomitant]
     Indication: MOOD SWINGS
     Dosage: 500 MG, UNK
     Route: 048

REACTIONS (29)
  - ABNORMAL BEHAVIOUR [None]
  - ACTIVATED PARTIAL THROMBOPLASTIN TIME PROLONGED [None]
  - ALANINE AMINOTRANSFERASE INCREASED [None]
  - ASCITES [None]
  - BLOOD ALBUMIN DECREASED [None]
  - BLOOD ALKALINE PHOSPHATASE INCREASED [None]
  - BLOOD BICARBONATE ABNORMAL [None]
  - BLOOD BILIRUBIN INCREASED [None]
  - BLOOD CALCIUM DECREASED [None]
  - BLOOD UREA ABNORMAL [None]
  - C-REACTIVE PROTEIN INCREASED [None]
  - CONFUSIONAL STATE [None]
  - EOSINOPHIL COUNT DECREASED [None]
  - GAMMA-GLUTAMYLTRANSFERASE INCREASED [None]
  - GLOBULIN ABNORMAL [None]
  - LIVER FUNCTION TEST ABNORMAL [None]
  - LOWER RESPIRATORY TRACT INFECTION [None]
  - LYMPHOCYTE COUNT DECREASED [None]
  - MALAISE [None]
  - MENTAL DISORDER [None]
  - NEUTROPHIL COUNT DECREASED [None]
  - ORTHOSTATIC HYPOTENSION [None]
  - PLATELET COUNT DECREASED [None]
  - PROTEIN TOTAL DECREASED [None]
  - PROTHROMBIN TIME PROLONGED [None]
  - RED BLOOD CELL COUNT INCREASED [None]
  - TREMOR [None]
  - TUMOUR MARKER INCREASED [None]
  - WHITE BLOOD CELL COUNT DECREASED [None]
